FAERS Safety Report 9716865 (Version 3)
Quarter: 2014Q2

REPORT INFORMATION
  Report Type: Spontaneous
  Country: IT (occurrence: IT)
  Receive Date: 20131127
  Receipt Date: 20140602
  Transmission Date: 20141212
  Serious: Yes (Other)
  Sender: FDA-Public Use
  Company Number: IT-SA-2013SA119191

PATIENT
  Age: 72 Year
  Sex: Male

DRUGS (9)
  1. PLAVIX [Suspect]
     Indication: MYOCARDIAL INFARCTION
     Route: 048
     Dates: start: 20130621, end: 20130704
  2. PLAVIX [Suspect]
     Indication: ELECTROCARDIOGRAM ST SEGMENT ELEVATION
     Route: 048
     Dates: start: 20130621, end: 20130704
  3. LANSOPRAZOLE [Concomitant]
  4. PERINDOPRIL [Concomitant]
  5. AMLODIPINE [Concomitant]
  6. CARDIOASPIRIN [Concomitant]
     Route: 048
     Dates: start: 20130621, end: 20130704
  7. TORVAST [Concomitant]
     Route: 048
     Dates: start: 20130621
  8. TAPAZOLE [Concomitant]
     Route: 048
  9. SIMVASTATIN [Concomitant]

REACTIONS (4)
  - Rales [Recovering/Resolving]
  - Hyperpyrexia [Recovering/Resolving]
  - Toxic skin eruption [Recovering/Resolving]
  - Erythema [Recovering/Resolving]
